FAERS Safety Report 26167366 (Version 2)
Quarter: 2025Q4

REPORT INFORMATION
  Report Type: Spontaneous
  Country: US (occurrence: US)
  Receive Date: 20251217
  Receipt Date: 20251223
  Transmission Date: 20260117
  Serious: No
  Sender: ALVOGEN
  Company Number: US-BMS-IMIDS-REMS_SI-1765314949967

PATIENT
  Age: 88 Year
  Sex: Female

DRUGS (1)
  1. LENALIDOMIDE [Suspect]
     Active Substance: LENALIDOMIDE
     Indication: Plasma cell myeloma
     Dosage: 10 MG

REACTIONS (1)
  - Off label use [Unknown]
